FAERS Safety Report 8398846-0 (Version None)
Quarter: 2012Q1

REPORT INFORMATION
  Report Type: 
  Country: None (occurrence: None)
  Receive Date: 20120323
  Receipt Date: 20111220
  Transmission Date: 20120608
  Serious: Yes (Hospitalization, Other)
  Sender: FDA-Public Use
  Company Number: 163-21880-11113622

PATIENT
  Age: 77 Year
  Sex: Female
  Weight: 80.7403 kg

DRUGS (15)
  1. RESTORIL [Concomitant]
  2. BACTRIM [Concomitant]
  3. FELODIPINE [Concomitant]
  4. LEVOXYL [Concomitant]
  5. VELCADE [Concomitant]
  6. BENAZEPRIL HYDROCHLORIDE [Concomitant]
  7. ASCORBIC ACID [Concomitant]
  8. ZOMETA [Concomitant]
  9. CALCIUM CARBONATE [Concomitant]
  10. POTASSIUM CHLORIDE [Concomitant]
  11. DEXAMETHASONE [Concomitant]
  12. REVLIMID [Suspect]
     Indication: MULTIPLE MYELOMA
     Dosage: SEE IMAGE
     Route: 048
     Dates: start: 20090201
  13. REVLIMID [Suspect]
     Indication: MULTIPLE MYELOMA
     Dosage: SEE IMAGE
     Route: 048
     Dates: start: 20110501
  14. REVLIMID [Suspect]
     Indication: MULTIPLE MYELOMA
     Dosage: SEE IMAGE
     Route: 048
     Dates: start: 20100101
  15. FERROUS GLUCONATE (FERROUS GLUCONATE) [Concomitant]

REACTIONS (5)
  - COLITIS ISCHAEMIC [None]
  - PANCYTOPENIA [None]
  - GASTROINTESTINAL HAEMORRHAGE [None]
  - NO THERAPEUTIC RESPONSE [None]
  - DRUG INTOLERANCE [None]
